FAERS Safety Report 25421804 (Version 2)
Quarter: 2025Q2

REPORT INFORMATION
  Report Type: Report from Study
  Country: IN (occurrence: IN)
  Receive Date: 20250611
  Receipt Date: 20250613
  Transmission Date: 20250716
  Serious: Yes (Other)
  Sender: ROCHE
  Company Number: IN-ROCHE-10000304578

PATIENT
  Age: 51 Year
  Sex: Female

DRUGS (1)
  1. PERJETA [Suspect]
     Active Substance: PERTUZUMAB
     Indication: Breast cancer
     Route: 042
     Dates: start: 20240531

REACTIONS (2)
  - Breast mass [Unknown]
  - Off label use [Unknown]

NARRATIVE: CASE EVENT DATE: 20250505
